FAERS Safety Report 6921488-8 (Version None)
Quarter: 2010Q3

REPORT INFORMATION
  Report Type: 
  Country: None (occurrence: None)
  Receive Date: 20100812
  Receipt Date: 20100701
  Transmission Date: 20110219
  Serious: Yes (Hospitalization, Other)
  Sender: FDA-Public Use
  Company Number: US-BAXTER-2010BH003640

PATIENT
  Age: 52 Year
  Sex: Male
  Weight: 116 kg

DRUGS (20)
  1. HEPARIN SODIUM INJECTION [Suspect]
     Indication: CORONARY ARTERY BYPASS
     Route: 042
     Dates: start: 20080117, end: 20080130
  2. HEPARIN SODIUM INJECTION [Suspect]
     Indication: ANTICOAGULANT THERAPY
     Route: 042
     Dates: start: 20080117, end: 20080130
  3. HEPARIN SODIUM INJECTION [Suspect]
     Route: 042
     Dates: start: 20080117, end: 20080130
  4. HEPARIN SODIUM INJECTION [Suspect]
     Route: 042
     Dates: start: 20080117, end: 20080130
  5. HEPARIN SODIUM INJECTION [Suspect]
     Route: 065
     Dates: start: 20080117, end: 20080117
  6. HEPARIN SODIUM INJECTION [Suspect]
     Route: 065
     Dates: start: 20080117, end: 20080117
  7. HEPARIN SODIUM INJECTION [Suspect]
     Route: 041
     Dates: start: 20080130, end: 20080101
  8. HEPARIN SODIUM INJECTION [Suspect]
     Route: 041
     Dates: start: 20080130, end: 20080101
  9. HEPARIN SODIUM 1,000 UNITS AND SODIUM CHLORIDE 0.9% [Suspect]
     Indication: CORONARY ARTERY BYPASS
     Route: 042
     Dates: start: 20080117, end: 20080117
  10. BYETTA [Concomitant]
     Indication: PRODUCT USED FOR UNKNOWN INDICATION
     Route: 065
  11. FLEXERIL [Concomitant]
     Indication: PRODUCT USED FOR UNKNOWN INDICATION
     Route: 065
  12. HYDROCODONE BITARTRATE [Concomitant]
     Indication: PAIN
     Route: 065
  13. INSULIN BASAL [Concomitant]
     Indication: PRODUCT USED FOR UNKNOWN INDICATION
     Route: 065
  14. LISINOPRIL [Concomitant]
     Indication: PRODUCT USED FOR UNKNOWN INDICATION
     Route: 065
  15. LOPRESSOR [Concomitant]
     Indication: PRODUCT USED FOR UNKNOWN INDICATION
     Route: 065
  16. METFORMIN HCL [Concomitant]
     Indication: PRODUCT USED FOR UNKNOWN INDICATION
     Route: 065
  17. NEXIUM [Concomitant]
     Indication: PRODUCT USED FOR UNKNOWN INDICATION
     Route: 065
  18. NOVOLOG [Concomitant]
     Indication: PRODUCT USED FOR UNKNOWN INDICATION
     Route: 065
  19. PLAVIX [Concomitant]
     Indication: PRODUCT USED FOR UNKNOWN INDICATION
     Route: 065
  20. EZETIMIBE [Concomitant]
     Indication: PRODUCT USED FOR UNKNOWN INDICATION
     Route: 065

REACTIONS (17)
  - ANAEMIA [None]
  - ASTHENIA [None]
  - BLINDNESS [None]
  - BLOOD GLUCOSE INCREASED [None]
  - DEEP VEIN THROMBOSIS [None]
  - DEHYDRATION [None]
  - DIABETIC KETOACIDOSIS [None]
  - DIARRHOEA [None]
  - HEPARIN-INDUCED THROMBOCYTOPENIA [None]
  - HYPERHIDROSIS [None]
  - HYPOTENSION [None]
  - METABOLIC ACIDOSIS [None]
  - PNEUMATOSIS INTESTINALIS [None]
  - PULMONARY EMBOLISM [None]
  - PYREXIA [None]
  - RENAL FAILURE ACUTE [None]
  - SYNCOPE [None]
